FAERS Safety Report 10004340 (Version 2)
Quarter: 2014Q2

REPORT INFORMATION
  Report Type: Report from Study
  Country: US (occurrence: US)
  Receive Date: 20140312
  Receipt Date: 20140421
  Transmission Date: 20141212
  Serious: Yes (Hospitalization)
  Sender: FDA-Public Use
  Company Number: US-CELGENEUS-163-21880-14024471

PATIENT
  Age: 61 Year
  Sex: Female

DRUGS (33)
  1. REVLIMID [Suspect]
     Indication: PLASMA CELL MYELOMA
     Route: 048
     Dates: start: 20120830
  2. NOREPINEPHRINE [Concomitant]
     Indication: PRODUCT USED FOR UNKNOWN INDICATION
     Dosage: 4 MG IN DEXTROSE 5% 250 ML
     Route: 041
  3. VANCOMYCIN [Concomitant]
     Indication: PYREXIA
     Dosage: 1G/D5W 250 ML
     Route: 041
     Dates: start: 20140210
  4. VANCOMYCIN [Concomitant]
     Indication: CLOSTRIDIUM DIFFICILE INFECTION
     Dosage: 500 MILLIGRAM
     Route: 048
  5. CEFEPIME [Concomitant]
     Indication: PYREXIA
     Dosage: 2 G/D5W 100 ML
     Route: 041
     Dates: start: 20140210
  6. AMPICILLIN [Concomitant]
     Indication: PYREXIA
     Dosage: 2 G/NS 100 ML
     Route: 041
  7. ACYCLOVIR [Concomitant]
     Indication: PYREXIA
     Dosage: 1600 MILLIGRAM
     Route: 048
     Dates: start: 20140115
  8. ACYCLOVIR [Concomitant]
     Dosage: 330 MG IN DEXTROSE 5%
     Route: 041
  9. HYDROCORTISONE [Concomitant]
     Indication: PRODUCT USED FOR UNKNOWN INDICATION
     Dosage: 50 MILLIGRAM
     Route: 048
  10. HYDROCORTISONE [Concomitant]
     Dosage: IN SODIUM CHLORIDE 0.9% (NS) 100 ML
     Route: 065
  11. HYDROCORTISONE [Concomitant]
     Dosage: 20-30 MG
     Route: 048
  12. PREDNISONE [Concomitant]
     Indication: PRODUCT USED FOR UNKNOWN INDICATION
     Route: 065
  13. GABAPENTIN [Concomitant]
     Indication: PRODUCT USED FOR UNKNOWN INDICATION
     Dosage: 600 MILLIGRAM
     Route: 048
  14. GABAPENTIN [Concomitant]
     Dosage: 1200 MILLIGRAM
     Route: 048
  15. ATORVASTATIN [Concomitant]
     Indication: PRODUCT USED FOR UNKNOWN INDICATION
     Dosage: 20 MILLIGRAM
     Route: 048
  16. METFORMIN [Concomitant]
     Indication: PRODUCT USED FOR UNKNOWN INDICATION
     Dosage: 1000 MILLIGRAM
     Route: 048
  17. OXYCODONE [Concomitant]
     Indication: BACK PAIN
     Dosage: 10 MILLIGRAM
     Route: 048
  18. AMITRIPTYLINE [Concomitant]
     Indication: PRODUCT USED FOR UNKNOWN INDICATION
     Dosage: 25 MILLIGRAM
     Route: 048
  19. FLUCONAZOLE [Concomitant]
     Indication: PRODUCT USED FOR UNKNOWN INDICATION
     Dosage: 400 MILLIGRAM
     Route: 048
  20. LEVOFLOXACIN [Concomitant]
     Indication: PRODUCT USED FOR UNKNOWN INDICATION
     Dosage: 500 MILLIGRAM
     Route: 048
     Dates: start: 20140210
  21. LEVOFLOXACIN [Concomitant]
     Dosage: 750 MG/150 ML
     Route: 041
  22. LASIX [Concomitant]
     Indication: FLUID OVERLOAD
     Route: 041
  23. LOVENOX [Concomitant]
     Indication: PRODUCT USED FOR UNKNOWN INDICATION
     Dosage: 40 MILLIGRAM
     Route: 058
  24. INSULIN ASPART [Concomitant]
     Indication: PRODUCT USED FOR UNKNOWN INDICATION
     Dosage: 0-28 UNITS
     Route: 058
  25. MAGNESIUM SULFATE [Concomitant]
     Indication: PRODUCT USED FOR UNKNOWN INDICATION
     Route: 041
  26. NICOTINE [Concomitant]
     Indication: PRODUCT USED FOR UNKNOWN INDICATION
     Dosage: 21 MILLIGRAM
     Route: 062
  27. SODIUM CHLORIDE [Concomitant]
     Indication: PRODUCT USED FOR UNKNOWN INDICATION
     Route: 041
  28. ALBUTEROL [Concomitant]
     Indication: RESPIRATORY DISORDER
     Route: 065
  29. NEUPOGEN [Concomitant]
     Indication: PRODUCT USED FOR UNKNOWN INDICATION
     Route: 065
  30. ACETAMINOPHEN [Concomitant]
     Indication: PRODUCT USED FOR UNKNOWN INDICATION
     Route: 065
  31. CALCIUM GLUCONATE [Concomitant]
     Indication: PRODUCT USED FOR UNKNOWN INDICATION
     Route: 041
  32. POTASSIUM CHLORIDE [Concomitant]
     Indication: PRODUCT USED FOR UNKNOWN INDICATION
     Route: 065
  33. SODIUM PHOSPHATE [Concomitant]
     Indication: PRODUCT USED FOR UNKNOWN INDICATION
     Route: 041

REACTIONS (1)
  - Mental status changes [Recovered/Resolved]
